FAERS Safety Report 26152776 (Version 1)
Quarter: 2025Q4

REPORT INFORMATION
  Report Type: Report from Study
  Country: US (occurrence: US)
  Receive Date: 20251214
  Receipt Date: 20251214
  Transmission Date: 20260118
  Serious: Yes (Hospitalization)
  Sender: ABBVIE
  Company Number: US-ABBVIE-6353482

PATIENT
  Sex: Male

DRUGS (1)
  1. SKYRIZI [Suspect]
     Active Substance: RISANKIZUMAB-RZAA
     Indication: Crohn^s disease
     Route: 058
     Dates: start: 20231109

REACTIONS (9)
  - Bronchopulmonary aspergillosis [Recovering/Resolving]
  - Headache [Recovering/Resolving]
  - Therapeutic response shortened [Unknown]
  - Feeling abnormal [Unknown]
  - Device issue [Unknown]
  - Diarrhoea [Recovering/Resolving]
  - Fatigue [Unknown]
  - Depression [Unknown]
  - Pneumonia [Not Recovered/Not Resolved]
